FAERS Safety Report 25975620 (Version 1)
Quarter: 2025Q4

REPORT INFORMATION
  Report Type: Spontaneous
  Country: US (occurrence: US)
  Receive Date: 20251029
  Receipt Date: 20251029
  Transmission Date: 20260117
  Serious: No
  Sender: PFIZER
  Company Number: US-PFIZER INC-202500212784

PATIENT
  Age: 81 Year
  Sex: Male

DRUGS (2)
  1. TALZENNA [Suspect]
     Active Substance: TALAZOPARIB TOSYLATE
     Indication: Prostate cancer
     Dosage: 0.35 MG, 1X/DAY (0.35 MG BY MOUTH ONCE DAILY IN THE MORNING)
     Route: 048
     Dates: start: 20250925, end: 20251002
  2. XTANDI [Suspect]
     Active Substance: ENZALUTAMIDE
     Dosage: UNK
     Dates: start: 20250902, end: 20251002

REACTIONS (1)
  - Fatigue [Recovering/Resolving]

NARRATIVE: CASE EVENT DATE: 20251002
